FAERS Safety Report 14254691 (Version 1)
Quarter: 2017Q4

REPORT INFORMATION
  Report Type: Spontaneous
  Country: US (occurrence: US)
  Receive Date: 20171206
  Receipt Date: 20171206
  Transmission Date: 20180321
  Serious: Yes (Hospitalization, Other)
  Sender: FDA-Public Use
  Company Number: US-APOTEX-2017AP022390

PATIENT
  Sex: Female
  Weight: 3 kg

DRUGS (3)
  1. DEXAMETHASONE. [Suspect]
     Active Substance: DEXAMETHASONE
     Indication: MATERNAL THERAPY TO ENHANCE FOETAL LUNG MATURITY
     Dosage: UNK
     Route: 064
  2. DIGOXIN. [Suspect]
     Active Substance: DIGOXIN
     Indication: JUNCTIONAL ECTOPIC TACHYCARDIA
     Dosage: UNK
     Route: 064
  3. FLECAINIDE ACETATE. [Suspect]
     Active Substance: FLECAINIDE ACETATE
     Indication: JUNCTIONAL ECTOPIC TACHYCARDIA
     Dosage: UNK
     Route: 064

REACTIONS (2)
  - Drug ineffective [Unknown]
  - Foetal exposure during pregnancy [Unknown]
